FAERS Safety Report 23410262 (Version 1)
Quarter: 2024Q1

REPORT INFORMATION
  Report Type: Spontaneous
  Country: US (occurrence: US)
  Receive Date: 20240117
  Receipt Date: 20240117
  Transmission Date: 20240409
  Serious: Yes (Hospitalization, Other)
  Sender: FDA-Public Use
  Company Number: US-FreseniusKabi-FK202400830

PATIENT
  Age: 30 Year
  Sex: Male

DRUGS (2)
  1. HEPARIN [Suspect]
     Active Substance: HEPARIN SODIUM
     Indication: Pulmonary embolism
     Route: 042
  2. PHENTOLAMINE [Concomitant]
     Active Substance: PHENTOLAMINE
     Indication: Prophylaxis

REACTIONS (2)
  - Phaeochromocytoma [Recovered/Resolved]
  - Tumour rupture [Recovered/Resolved]
